FAERS Safety Report 4536680-X (Version None)
Quarter: 2004Q4

REPORT INFORMATION
  Report Type: 
  Country: None (occurrence: None)
  Receive Date: 20041220
  Receipt Date: 20041206
  Transmission Date: 20050328
  Serious: Yes (Hospitalization)
  Sender: FDA-Public Use
  Company Number: 2004109050

PATIENT
  Age: 71 Year
  Sex: Female

DRUGS (2)
  1. LIPITOR [Suspect]
     Indication: HYPERCHOLESTEROLAEMIA
     Dosage: 10 MG (10 MG, DAILY), ORAL
     Route: 048
     Dates: start: 20040730, end: 20040827
  2. AMLODIPINE [Suspect]
     Indication: HYPERTENSION
     Dosage: 5 MG (5 MG, DAILY), ORAL
     Route: 048
     Dates: start: 20040813, end: 20040913

REACTIONS (6)
  - MALAISE [None]
  - NAUSEA [None]
  - NEPHROGENIC ANAEMIA [None]
  - OEDEMA [None]
  - RENAL DISORDER [None]
  - RENAL IMPAIRMENT [None]
